FAERS Safety Report 8562618-4 (Version None)
Quarter: 2012Q3

REPORT INFORMATION
  Report Type: 
  Country: None (occurrence: None)
  Receive Date: 20120802
  Receipt Date: 20120710
  Transmission Date: 20120928
  Serious: No
  Sender: FDA-Public Use
  Company Number: US-AMGEN-USASP2012042710

PATIENT
  Sex: Female

DRUGS (1)
  1. ENBREL [Suspect]
     Indication: PSORIATIC ARTHROPATHY
     Dosage: UNK

REACTIONS (9)
  - ACTIVITIES OF DAILY LIVING IMPAIRED [None]
  - INJECTION SITE ERYTHEMA [None]
  - INJECTION SITE PRURITUS [None]
  - RASH [None]
  - FATIGUE [None]
  - ASTHENIA [None]
  - PRURITUS GENERALISED [None]
  - MALAISE [None]
  - INJECTION SITE REACTION [None]
